FAERS Safety Report 18812402 (Version 2)
Quarter: 2021Q2

REPORT INFORMATION
  Report Type: Spontaneous
  Country: US (occurrence: US)
  Receive Date: 20210130
  Receipt Date: 20210630
  Transmission Date: 20210717
  Serious: Yes (Death, Life-Threatening, Hospitalization)
  Sender: FDA-Public Use
  Company Number: US-TEVA-2021-US-1872018

PATIENT
  Age: 35 Year
  Sex: Female
  Weight: 59 kg

DRUGS (2)
  1. METHYLPHENIDATE. [Concomitant]
     Active Substance: METHYLPHENIDATE
     Indication: PRODUCT USED FOR UNKNOWN INDICATION
     Route: 048
  2. BUPROPION. [Suspect]
     Active Substance: BUPROPION
     Indication: OVERDOSE
     Dosage: EXTENDED RELEASE 90 TABLETS OF 150 MG
     Route: 048

REACTIONS (9)
  - Metabolic acidosis [Unknown]
  - Cardiac arrest [Recovered/Resolved]
  - Tachycardia [Unknown]
  - Toxicity to various agents [Fatal]
  - Intentional overdose [Fatal]
  - Brain death [Fatal]
  - Status epilepticus [Unknown]
  - Hypotension [Unknown]
  - Sinus tachycardia [Unknown]
